FAERS Safety Report 7764350-3 (Version None)
Quarter: 2011Q3

REPORT INFORMATION
  Report Type: 
  Country: None (occurrence: None)
  Receive Date: 20110921
  Receipt Date: 20110907
  Transmission Date: 20111222
  Serious: Yes (Hospitalization)
  Sender: FDA-Public Use
  Company Number: SE-NOVOPROD-334838

PATIENT

DRUGS (7)
  1. REPAGLINIDE [Suspect]
     Indication: TYPE 2 DIABETES MELLITUS
     Dosage: UNK
     Route: 065
  2. LEVODOPA [Concomitant]
  3. METFORMIN HCL [Concomitant]
     Indication: TYPE 2 DIABETES MELLITUS
  4. PARAFLEX                           /00041601/ [Concomitant]
  5. PRAMIPEXOLE DIHYDROCHLORIDE [Concomitant]
  6. JANUVIA [Concomitant]
     Indication: TYPE 2 DIABETES MELLITUS
  7. ASPIRIN [Concomitant]

REACTIONS (2)
  - MUSCLE SPASMS [None]
  - RESTLESSNESS [None]
